FAERS Safety Report 17623027 (Version 2)
Quarter: 2020Q2

REPORT INFORMATION
  Report Type: Spontaneous
  Country: US (occurrence: US)
  Receive Date: 20200403
  Receipt Date: 20200608
  Transmission Date: 20200713
  Serious: No
  Sender: FDA-Public Use
  Company Number: US-VERTEX PHARMACEUTICALS-2020-007272

PATIENT
  Sex: Female
  Weight: 27 kg

DRUGS (13)
  1. CALCIUM + D3 [CALCIUM;COLECALCIFEROL] [Concomitant]
     Dosage: 600 MG-500 TABLET ER
  2. AZITHROMYCIN ANHYDROUS. [Concomitant]
     Active Substance: AZITHROMYCIN ANHYDROUS
  3. BETHKIS [Concomitant]
     Active Substance: TOBRAMYCIN
  4. ZYRTEC-D [Concomitant]
     Active Substance: CETIRIZINE HYDROCHLORIDE\PSEUDOEPHEDRINE HYDROCHLORIDE
     Dosage: 5 MG-120MG TAB.SR 12H
  5. VENTOLIN HFA [Concomitant]
     Active Substance: ALBUTEROL SULFATE
     Dosage: 90 MCG HFA AER AD
  6. PULMOZYME [Concomitant]
     Active Substance: DORNASE ALFA
  7. MIRALAX [Concomitant]
     Active Substance: POLYETHYLENE GLYCOL 3350
     Dosage: 17G/DOSE POWDER
  8. VITAMIN D [COLECALCIFEROL] [Concomitant]
     Active Substance: CHOLECALCIFEROL
     Dosage: 400 UNIT TABLET
  9. SODIUM CHLORIDE. [Concomitant]
     Active Substance: SODIUM CHLORIDE
  10. SYMDEKO [Suspect]
     Active Substance: IVACAFTOR\TEZACAFTOR
     Indication: CYSTIC FIBROSIS
     Dosage: 50MG/75MG, ONE WHITE TAB, TWICE WEEKLY IN AM
     Route: 048
  11. PREDNISONE. [Concomitant]
     Active Substance: PREDNISONE
     Dosage: 10 MG
  12. TOBRAMYCIN. [Concomitant]
     Active Substance: TOBRAMYCIN
     Dosage: 300 MG/5ML AMPUL-NEB
  13. ITRACONAZOLE. [Concomitant]
     Active Substance: ITRACONAZOLE

REACTIONS (1)
  - Infection [Unknown]
